FAERS Safety Report 20885313 (Version 1)
Quarter: 2022Q2

REPORT INFORMATION
  Report Type: Spontaneous
  Country: US (occurrence: None)
  Receive Date: 20220527
  Receipt Date: 20220527
  Transmission Date: 20220721
  Serious: Yes (Hospitalization)
  Sender: FDA-Public Use
  Company Number: None

PATIENT
  Age: 55 Year
  Sex: Female

DRUGS (1)
  1. TADALAFIL [Suspect]
     Active Substance: TADALAFIL
     Indication: Pulmonary arterial hypertension
     Dosage: 40 MG DAILY BY MOUTH
     Route: 048
     Dates: start: 20211224, end: 20220504

REACTIONS (3)
  - Lung transplant [None]
  - Therapy cessation [None]
  - Respiratory disorder [None]

NARRATIVE: CASE EVENT DATE: 20220429
